FAERS Safety Report 14610168 (Version 2)
Quarter: 2018Q1

REPORT INFORMATION
  Report Type: Spontaneous
  Country: BR (occurrence: BR)
  Receive Date: 20180307
  Receipt Date: 20180327
  Transmission Date: 20180509
  Serious: Yes (Hospitalization)
  Sender: FDA-Public Use
  Company Number: PHHY2018BR036149

PATIENT
  Sex: Female
  Weight: 68 kg

DRUGS (1)
  1. CODATEN [Suspect]
     Active Substance: CODEINE PHOSPHATE\DICLOFENAC SODIUM
     Indication: MIGRAINE
     Dosage: 2 DF, QW
     Route: 048

REACTIONS (2)
  - Migraine [Recovering/Resolving]
  - Pain [Recovering/Resolving]
